FAERS Safety Report 25497564 (Version 3)
Quarter: 2025Q4

REPORT INFORMATION
  Report Type: Spontaneous
  Country: US (occurrence: US)
  Receive Date: 20250701
  Receipt Date: 20251024
  Transmission Date: 20260118
  Serious: No
  Sender: BECTON DICKINSON
  Company Number: US-BECTON DICKINSON-US-BD-25-000295

PATIENT
  Age: 42 Year
  Sex: Male

DRUGS (1)
  1. CHLORAPREP [Suspect]
     Active Substance: CHLORHEXIDINE GLUCONATE\ISOPROPYL ALCOHOL
     Indication: Product used for unknown indication
     Dosage: 1 SWAB
     Route: 061
     Dates: start: 20250606, end: 20250606

REACTIONS (3)
  - Injury associated with device [Recovered/Resolved]
  - Device breakage [Recovered/Resolved]
  - Occupational exposure to product [Recovered/Resolved]

NARRATIVE: CASE EVENT DATE: 20250606
